FAERS Safety Report 21331782 (Version 1)
Quarter: 2022Q3

REPORT INFORMATION
  Report Type: Spontaneous
  Country: NL (occurrence: NL)
  Receive Date: 20220914
  Receipt Date: 20220914
  Transmission Date: 20221027
  Serious: Yes (Hospitalization)
  Sender: FDA-Public Use
  Company Number: None

PATIENT
  Sex: Female
  Weight: 57 kg

DRUGS (9)
  1. ALLOPURINOL [Suspect]
     Active Substance: ALLOPURINOL
     Indication: Gout
     Dosage: 200 MILLIGRAM DAILY; 1X200MG , FORM STRENGTH :  100MG / BRAND NAME NOT SPECIFIED , DURATION : 24 DAY
     Dates: start: 20220516, end: 20220609
  2. METFORMIN HYDROCHLORIDE [Concomitant]
     Active Substance: METFORMIN HYDROCHLORIDE
     Indication: Product used for unknown indication
     Dosage: FORM STRENGTH :  500 MG (MILLIGRAM), / BRAND NAME NOT SPECIFIED , THERAPY START DATE AND END DATE :
  3. CHOLECALCIFEROL [Concomitant]
     Active Substance: CHOLECALCIFEROL
     Indication: Product used for unknown indication
     Dosage: 800 UNITS ,  800IE / BRAND NAME NOT SPECIFIED , THERAPY START DATE AND END DATE : ASKU
  4. ACENOCOUMAROL [Concomitant]
     Active Substance: ACENOCOUMAROL
     Indication: Product used for unknown indication
     Dosage: FORM STRENGTH : 1 MG (MILLIGRAM) , / BRAND NAME NOT SPECIFIED , THERAPY START DATE AND END DATE : AS
  5. SPIRONOLACTONE [Concomitant]
     Active Substance: SPIRONOLACTONE
     Indication: Product used for unknown indication
     Dosage: FORM STRENGTH : , 100 MG (MILLIGRAM) ,  / BRAND NAME NOT SPECIFIED , THERAPY START DATE AND END DATE
  6. GLICLAZIDE [Concomitant]
     Active Substance: GLICLAZIDE
     Indication: Product used for unknown indication
     Dosage: FORM STRENGTH :  30 MG (MILLIGRAM) ,  TABLET MGA 30MG / BRAND NAME NOT SPECIFIED , THERAPY START DAT
  7. DIGOXIN [Concomitant]
     Active Substance: DIGOXIN
     Indication: Product used for unknown indication
     Dosage: FORM STRENGTH :  0,125 MG (MILLIGRAM) ,  / BRAND NAME NOT SPECIFIED , THERAPY START DATE AND END DAT
  8. FUROSEMIDE [Concomitant]
     Active Substance: FUROSEMIDE
     Indication: Product used for unknown indication
     Dosage: FORM STRENGTH : 40 MG (MILLIGRAM) ,/ BRAND NAME NOT SPECIFIED , THERAPY START DATE AND END DATE : AS
  9. PREDNISOLONE [Concomitant]
     Active Substance: PREDNISOLONE
     Indication: Product used for unknown indication
     Dosage: FORM STRENGTH : 5 MG (MILLIGRAM) ,  / BRAND NAME NOT SPECIFIED , THERAPY START DATE AND END DATE : A

REACTIONS (1)
  - Drug reaction with eosinophilia and systemic symptoms [Recovering/Resolving]
